FAERS Safety Report 21083024 (Version 1)
Quarter: 2022Q3

REPORT INFORMATION
  Report Type: Spontaneous
  Country: US (occurrence: None)
  Receive Date: 20220714
  Receipt Date: 20220714
  Transmission Date: 20221026
  Serious: Yes (Death)
  Sender: FDA-Public Use
  Company Number: None

PATIENT
  Age: 74 Year
  Sex: Male

DRUGS (1)
  1. RETACRIT [Suspect]
     Active Substance: EPOETIN ALFA-EPBX
     Indication: Plasma cell myeloma
     Dosage: OTHER STRENGTH : 40,000 U/ML;?OTHER QUANTITY : 40,000 UNITS;?FREQUENCY : WEEKLY;?
     Route: 058
     Dates: start: 20211220, end: 20220527

REACTIONS (1)
  - Death [None]

NARRATIVE: CASE EVENT DATE: 20220611
